FAERS Safety Report 9779951 (Version 2)
Quarter: 2014Q1

REPORT INFORMATION
  Report Type: Spontaneous
  Country: JM (occurrence: JM)
  Receive Date: 20131223
  Receipt Date: 20140106
  Transmission Date: 20141002
  Serious: Yes (Hospitalization, Other)
  Sender: FDA-Public Use
  Company Number: JM-B.I. PHARMACEUTICALS,INC./RIDGEFIELD-2013-BI-42803CN

PATIENT
  Age: 79 Year
  Sex: Female

DRUGS (3)
  1. PRADAX [Suspect]
     Indication: ATRIAL FIBRILLATION
     Dosage: 220 MG
     Dates: start: 2012
  2. STATIN [Concomitant]
     Indication: DYSLIPIDAEMIA
  3. MEDICATION NOT FURTHER SPECIFIED [Concomitant]

REACTIONS (2)
  - Ischaemic stroke [Recovered/Resolved]
  - Hemiparesis [Not Recovered/Not Resolved]
